FAERS Safety Report 13371000 (Version 1)
Quarter: 2017Q1

REPORT INFORMATION
  Report Type: Spontaneous
  Country: FR (occurrence: FR)
  Receive Date: 20170324
  Receipt Date: 20170324
  Transmission Date: 20170429
  Serious: Yes (Hospitalization, Other)
  Sender: FDA-Public Use
  Company Number: FR-ASTRAZENECA-2017SE29534

PATIENT
  Age: 27189 Day
  Sex: Female

DRUGS (8)
  1. INEXIUM [Suspect]
     Active Substance: ESOMEPRAZOLE
     Route: 048
     Dates: end: 20170206
  2. KARDEGIC [Suspect]
     Active Substance: ASPIRIN LYSINE
     Route: 048
     Dates: start: 20170224
  3. ZYDELIG [Suspect]
     Active Substance: IDELALISIB
     Indication: LYMPHOMA
     Route: 048
     Dates: start: 20161203, end: 20170206
  4. ROSUVASTATIN. [Suspect]
     Active Substance: ROSUVASTATIN
     Route: 048
     Dates: start: 201612, end: 20170206
  5. VALSARTAN. [Concomitant]
     Active Substance: VALSARTAN
  6. TRINITRINE [Concomitant]
     Active Substance: NITROGLYCERIN
  7. KARDEGIC [Suspect]
     Active Substance: ASPIRIN LYSINE
     Route: 048
     Dates: end: 20170206
  8. BISOPROLOL [Concomitant]
     Active Substance: BISOPROLOL

REACTIONS (9)
  - Lower gastrointestinal haemorrhage [Unknown]
  - Crohn^s disease [Unknown]
  - Acute kidney injury [Recovering/Resolving]
  - Hyponatraemia [Unknown]
  - Hyperkalaemia [Unknown]
  - Colitis erosive [Recovering/Resolving]
  - Altered state of consciousness [Unknown]
  - Anaemia [Not Recovered/Not Resolved]
  - Rectal haemorrhage [Unknown]

NARRATIVE: CASE EVENT DATE: 20170203
